FAERS Safety Report 6423594-3 (Version None)
Quarter: 2009Q4

REPORT INFORMATION
  Report Type: 
  Country: None (occurrence: None)
  Receive Date: 20091030
  Receipt Date: 20091030
  Transmission Date: 20100525
  Serious: No
  Sender: FDA-Public Use
  Company Number: None

PATIENT
  Age: 1 Day
  Sex: Female
  Weight: 2.9484 kg

DRUGS (2)
  1. GENTAMICIN [Suspect]
     Indication: OPHTHALMIA NEONATORUM
     Dosage: 1 RIBBON BOTH EYES ONCE OPHTHALMIC
     Route: 047
     Dates: start: 20091020, end: 20091020
  2. GENTAMICIN [Suspect]
     Indication: PROPHYLAXIS
     Dosage: 1 RIBBON BOTH EYES ONCE OPHTHALMIC
     Route: 047
     Dates: start: 20091020, end: 20091020

REACTIONS (1)
  - DERMATITIS [None]
